FAERS Safety Report 17849591 (Version 1)
Quarter: 2020Q2

REPORT INFORMATION
  Report Type: Spontaneous
  Country: US (occurrence: US)
  Receive Date: 20200602
  Receipt Date: 20200602
  Transmission Date: 20200714
  Serious: Yes (Other)
  Sender: FDA-Public Use
  Company Number: US-PFIZER INC-2020214133

PATIENT
  Age: 37 Year
  Sex: Male

DRUGS (3)
  1. METHIMAZOLE. [Interacting]
     Active Substance: METHIMAZOLE
     Dosage: UNK (RECENT ADDITION OF METHIMAZOLE, 6 WEEKS PRIOR)
  2. PROPYLTHIOURACIL. [Interacting]
     Active Substance: PROPYLTHIOURACIL
     Dosage: UNK
  3. METHYLPREDNISOLONE ACETATE. [Suspect]
     Active Substance: METHYLPREDNISOLONE ACETATE
     Dosage: UNK

REACTIONS (2)
  - Drug-induced liver injury [Recovered/Resolved]
  - Drug interaction [Unknown]
